FAERS Safety Report 16773464 (Version 1)
Quarter: 2019Q4

REPORT INFORMATION
  Report Type: Spontaneous
  Country: US (occurrence: US)
  Receive Date: 20190904
  Receipt Date: 20190904
  Transmission Date: 20200122
  Serious: Yes (Disabling)
  Sender: FDA-Public Use
  Company Number: None

PATIENT
  Age: 58 Year
  Sex: Female
  Weight: 60.75 kg

DRUGS (3)
  1. FLECAINIDE [Suspect]
     Active Substance: FLECAINIDE
     Indication: ATRIAL FIBRILLATION
     Route: 048
     Dates: start: 20180701, end: 20181108
  2. METOPROLOL. [Concomitant]
     Active Substance: METOPROLOL
  3. ASA [Concomitant]
     Active Substance: ASPIRIN

REACTIONS (4)
  - Arthralgia [None]
  - Fatigue [None]
  - Loss of personal independence in daily activities [None]
  - Oedema [None]

NARRATIVE: CASE EVENT DATE: 20180701
